FAERS Safety Report 10528847 (Version 4)
Quarter: 2015Q1

REPORT INFORMATION
  Report Type: Spontaneous
  Country: US (occurrence: US)
  Receive Date: 20141020
  Receipt Date: 20150331
  Transmission Date: 20150720
  Serious: Yes (Hospitalization, Other)
  Sender: FDA-Public Use
  Company Number: US-PFIZER INC-2014282721

PATIENT
  Age: 62 Year
  Sex: Female
  Weight: 81 kg

DRUGS (16)
  1. XELJANZ [Concomitant]
     Active Substance: TOFACITINIB CITRATE
     Dosage: 5 MG, 2X/DAY
     Dates: start: 201409
  2. CALCIUM PLUS D3 [Concomitant]
     Dosage: 600 MG, 2X/DAY
  3. LYRICA [Suspect]
     Active Substance: PREGABALIN
     Indication: HYPOAESTHESIA
     Dosage: 50 MG, 1X/DAY
     Dates: start: 20140928
  4. LYRICA [Suspect]
     Active Substance: PREGABALIN
     Indication: NEURALGIA
     Dosage: 50 MG, 3X/DAY
     Dates: start: 201409
  5. ZYRTEC [Concomitant]
     Active Substance: CETIRIZINE HYDROCHLORIDE
     Dosage: 10 MG, 1X/DAY
     Dates: start: 2002
  6. LYRICA [Suspect]
     Active Substance: PREGABALIN
     Indication: RESTLESS LEGS SYNDROME
  7. MOBIC [Concomitant]
     Active Substance: MELOXICAM
     Indication: ARTHRITIS
     Dosage: 15 MG, AS NEEDED
  8. FERROUS GLUCONATE [Concomitant]
     Active Substance: FERROUS GLUCONATE
     Dosage: 27 MG,FOUR TIMES A WEEK
  9. SUPER B COMPLEX PLUS C [Concomitant]
     Dosage: UNK, DAILY
     Dates: start: 2014
  10. PLAQUENIL [Concomitant]
     Active Substance: HYDROXYCHLOROQUINE SULFATE
     Dosage: 200 MG, 2X/DAY
     Dates: start: 2012, end: 2014
  11. PREVACID [Concomitant]
     Active Substance: LANSOPRAZOLE
     Dosage: 30 MG, UNK
     Dates: start: 2003
  12. MULTIVITAMINS [Concomitant]
     Active Substance: VITAMINS
     Dosage: UNK, ONCE DAILY
  13. BABY ASPIRIN [Concomitant]
     Active Substance: ASPIRIN
     Dosage: 81 MG ONCE ON MONDAY, WEDNESDAY, AND FRIDAY
     Dates: start: 2005, end: 2015
  14. SYNTHROID [Concomitant]
     Active Substance: LEVOTHYROXINE SODIUM
     Dosage: 0.05 ?G, UNK
     Dates: start: 2004
  15. FISH OIL [Concomitant]
     Active Substance: FISH OIL
     Dosage: 1200 MG, 2X/DAY
     Dates: start: 2003
  16. RESTASIS [Concomitant]
     Active Substance: CYCLOSPORINE
     Dosage: 0.05 %, 2X/DAY
     Route: 031
     Dates: start: 2010

REACTIONS (5)
  - Carpal tunnel syndrome [Not Recovered/Not Resolved]
  - Drug effect incomplete [Recovered/Resolved]
  - Hypoaesthesia [Unknown]
  - Product use issue [Unknown]
  - Intentional product misuse [Unknown]

NARRATIVE: CASE EVENT DATE: 201409
